FAERS Safety Report 8100151-4 (Version None)
Quarter: 2012Q1

REPORT INFORMATION
  Report Type: 
  Country: None (occurrence: None)
  Receive Date: 20120129
  Receipt Date: 20111128
  Transmission Date: 20120608
  Serious: No
  Sender: FDA-Public Use
  Company Number: US-ABBOTT-11P-163-0879086-00

PATIENT
  Age: 16 Year
  Sex: Male

DRUGS (5)
  1. NAPROXEN [Concomitant]
     Indication: PAIN
     Route: 048
  2. ASCORBIC ACID [Concomitant]
     Indication: VITAMIN SUPPLEMENTATION
     Dosage: DAILY
     Route: 048
  3. NITRO-BID [Concomitant]
     Indication: ANGIOPATHY
  4. HUMIRA [Suspect]
     Indication: ANKYLOSING SPONDYLITIS
     Dates: start: 20111015
  5. MULTI-VITAMIN [Concomitant]
     Indication: VITAMIN SUPPLEMENTATION
     Dosage: DAILY
     Route: 048

REACTIONS (1)
  - INJECTION SITE PAIN [None]
